FAERS Safety Report 8844452 (Version 1)
Quarter: 2012Q4

REPORT INFORMATION
  Report Type: Spontaneous
  Country: DE (occurrence: None)
  Receive Date: 20121012
  Receipt Date: 20121012
  Transmission Date: 20130627
  Serious: Yes (Hospitalization)
  Sender: FDA-Public Use
  Company Number: DE-006347

PATIENT
  Age: 28 Year
  Sex: Female

DRUGS (16)
  1. DESMOPRESSIN [Suspect]
     Indication: POSTPARTUM HAEMORRHAGE
  2. DINOPROSTONE [Concomitant]
  3. MISOPROSTOL [Concomitant]
  4. SULPROSTONE [Concomitant]
  5. TRANEXAMIC ACID [Concomitant]
  6. BLOOD CELLS, PACKED HUMAN [Concomitant]
  7. PLASMA, FRESH FROZEN [Concomitant]
  8. PLATELETS, HUMAN BLOOD [Concomitant]
  9. ANTITHROMBIN [Concomitant]
  10. HUMAN-PPSB [Concomitant]
  11. FACTOR II (PROTHROMBIN) [Concomitant]
  12. FACTOR IX COMPLEX HUMAN [Concomitant]
  13. FACTOR VII [Concomitant]
  14. FACTOR X (STUART PROWER FACTOR) [Concomitant]
  15. FACTOR I (FIBRINOGEN) [Concomitant]
  16. PROTEIN C (COAGULATION INHIBITOR) [Concomitant]

REACTIONS (5)
  - Thrombotic thrombocytopenic purpura [None]
  - Epistaxis [None]
  - Subcutaneous haematoma [None]
  - Neurological symptom [None]
  - Visual field defect [None]
